FAERS Safety Report 18598544 (Version 4)
Quarter: 2021Q1

REPORT INFORMATION
  Report Type: Report from Study
  Country: CD (occurrence: CD)
  Receive Date: 20201210
  Receipt Date: 20210203
  Transmission Date: 20210419
  Serious: Yes (Hospitalization, Other)
  Sender: FDA-Public Use
  Company Number: CD-CIPLA LTD.-2020CD09098

PATIENT

DRUGS (1)
  1. LOPINAVIR/RITONAVIR [Suspect]
     Active Substance: LOPINAVIR\RITONAVIR
     Indication: COVID-19
     Dosage: UNK (200 MG/50 MG TABLET)
     Route: 065
     Dates: start: 20201126

REACTIONS (1)
  - Haemoptysis [Recovered/Resolved]

NARRATIVE: CASE EVENT DATE: 20201129
